FAERS Safety Report 10589636 (Version 1)
Quarter: 2014Q4

REPORT INFORMATION
  Report Type: Report from Study
  Country: US (occurrence: US)
  Receive Date: 20141118
  Receipt Date: 20141118
  Transmission Date: 20150529
  Serious: Yes (Hospitalization, Other)
  Sender: FDA-Public Use
  Company Number: US-AMGEN-USASL2014087605

PATIENT
  Age: 67 Year
  Sex: Female

DRUGS (7)
  1. SYNTHROID [Concomitant]
     Active Substance: LEVOTHYROXINE SODIUM
     Dosage: 0.075 UNK, QD
  2. HYDROCHLOROTHIAZIDE. [Concomitant]
     Active Substance: HYDROCHLOROTHIAZIDE
     Dosage: 25 MG, QD
  3. LISINOPRIL. [Concomitant]
     Active Substance: LISINOPRIL
     Dosage: 40 UNK, QD
  4. PRAVASTATIN [Concomitant]
     Active Substance: PRAVASTATIN\PRAVASTATIN SODIUM
     Dosage: 40 MG, QD
  5. METFORMIN [Concomitant]
     Active Substance: METFORMIN HYDROCHLORIDE
     Dosage: 500 UNK, QD
  6. CARVEDILOL AL [Concomitant]
     Dosage: 25 MG, BID
  7. PROLIA [Suspect]
     Active Substance: DENOSUMAB
     Indication: OSTEOPOROSIS POSTMENOPAUSAL
     Dosage: UNK UNK, Q6MO
     Route: 065

REACTIONS (13)
  - Jaw disorder [Recovered/Resolved]
  - White blood cell count increased [Unknown]
  - Artificial crown procedure [Unknown]
  - Purulent discharge [Unknown]
  - Erythema [Recovered/Resolved]
  - Loss of consciousness [Unknown]
  - Osteomyelitis [Recovered/Resolved]
  - Encephalitis [Recovered/Resolved]
  - Local swelling [Recovered/Resolved]
  - Hypotension [Unknown]
  - Tooth extraction [Unknown]
  - Back pain [Recovering/Resolving]
  - Dysarthria [Unknown]

NARRATIVE: CASE EVENT DATE: 201311
